FAERS Safety Report 6684790-3 (Version None)
Quarter: 2010Q2

REPORT INFORMATION
  Report Type: 
  Country: None (occurrence: None)
  Receive Date: 20100416
  Receipt Date: 20100405
  Transmission Date: 20101027
  Serious: Yes (Hospitalization)
  Sender: FDA-Public Use
  Company Number: US-ELI_LILLY_AND_COMPANY-US201004000786

PATIENT
  Sex: Male

DRUGS (6)
  1. BYETTA [Suspect]
     Dosage: 10 UG, 2/D
     Route: 058
  2. METFORMIN [Concomitant]
     Indication: TYPE 2 DIABETES MELLITUS
     Dosage: 2000 MG, DAILY (1/D)
     Route: 048
  3. AVANDIA [Concomitant]
     Indication: TYPE 2 DIABETES MELLITUS
     Route: 048
     Dates: end: 20090101
  4. ISOSORBIDE DINITRATE [Concomitant]
     Dosage: 30 MG, DAILY (1/D)
     Route: 048
     Dates: start: 20100101
  5. COZAAR [Concomitant]
     Indication: BLOOD PRESSURE
     Dosage: 50 MG, DAILY (1/D)
     Route: 048
  6. SIMVASTATIN [Concomitant]
     Dosage: 40 MG, DAILY (1/D)
     Route: 048

REACTIONS (7)
  - BLOOD GLUCOSE INCREASED [None]
  - CHEST PAIN [None]
  - DYSPNOEA [None]
  - GASTROINTESTINAL DISORDER [None]
  - HEADACHE [None]
  - IRRITABLE BOWEL SYNDROME [None]
  - PANIC ATTACK [None]
